FAERS Safety Report 23748589 (Version 1)
Quarter: 2024Q2

REPORT INFORMATION
  Report Type: Spontaneous
  Country: US (occurrence: US)
  Receive Date: 20240416
  Receipt Date: 20240416
  Transmission Date: 20240716
  Serious: No
  Sender: FDA-Public Use
  Company Number: US-SA-SAC20240409000639

PATIENT
  Sex: Male
  Weight: 96.1 kg

DRUGS (5)
  1. DUPIXENT [Suspect]
     Active Substance: DUPILUMAB
     Indication: Dermatitis atopic
     Dosage: 300 MG, QOW
     Route: 058
     Dates: start: 2019
  2. MELATONIN [Concomitant]
     Active Substance: MELATONIN
  3. OMEPRAZOLE [Concomitant]
     Active Substance: OMEPRAZOLE
  4. LISINOPRIL [Concomitant]
     Active Substance: LISINOPRIL
  5. FLUOXETINE HYDROCHLORIDE [Concomitant]
     Active Substance: FLUOXETINE HYDROCHLORIDE

REACTIONS (3)
  - Dermatitis atopic [Unknown]
  - Rash [Unknown]
  - Product dose omission issue [Unknown]
